FAERS Safety Report 6924826-5 (Version None)
Quarter: 2010Q3

REPORT INFORMATION
  Report Type: 
  Country: None (occurrence: None)
  Receive Date: 20100816
  Receipt Date: 20100811
  Transmission Date: 20110219
  Serious: Yes (Other)
  Sender: FDA-Public Use
  Company Number: US-ASTRAZENECA-2007UW21680

PATIENT
  Age: 17220 Day
  Sex: Female
  Weight: 72.6 kg

DRUGS (29)
  1. SEROQUEL [Suspect]
     Indication: DEPRESSION
     Dosage: 25 MG TO 250 MG
     Route: 048
     Dates: start: 20030522, end: 20060926
  2. SEROQUEL [Suspect]
     Indication: INSOMNIA
     Dosage: 25 MG TO 250 MG
     Route: 048
     Dates: start: 20030522, end: 20060926
  3. SEROQUEL [Suspect]
     Indication: BORDERLINE PERSONALITY DISORDER
     Dosage: 25 MG TO 250 MG
     Route: 048
     Dates: start: 20030522, end: 20060926
  4. SEROQUEL [Suspect]
     Dosage: 100 MG TO 250 MG
     Route: 048
     Dates: start: 20040101, end: 20061001
  5. SEROQUEL [Suspect]
     Dosage: 100 MG TO 250 MG
     Route: 048
     Dates: start: 20040101, end: 20061001
  6. SEROQUEL [Suspect]
     Dosage: 100 MG TO 250 MG
     Route: 048
     Dates: start: 20040101, end: 20061001
  7. SEROQUEL [Suspect]
     Dosage: 25 MG - 200 MG AT NIGHT
     Route: 048
     Dates: start: 20050121
  8. SEROQUEL [Suspect]
     Dosage: 25 MG - 200 MG AT NIGHT
     Route: 048
     Dates: start: 20050121
  9. SEROQUEL [Suspect]
     Dosage: 25 MG - 200 MG AT NIGHT
     Route: 048
     Dates: start: 20050121
  10. THEOPHYLLINE-SR [Concomitant]
     Dates: start: 20050118
  11. TRICOR [Concomitant]
     Dates: start: 20050118
  12. LIPITOR [Concomitant]
     Dates: start: 20050118
  13. ISOSORBIDE MN [Concomitant]
     Dates: start: 20050121
  14. FLUOXETINE [Concomitant]
     Dates: start: 20050121
  15. ABILIFY [Concomitant]
     Dates: start: 20050121
  16. ZETIA [Concomitant]
     Dates: start: 20050127
  17. NADOLOL [Concomitant]
     Dates: start: 20050217
  18. TRAZODONE HCL [Concomitant]
     Dates: start: 20050217
  19. WELLBUTRIN XL [Concomitant]
     Dates: start: 20050311
  20. RISPERDAL [Concomitant]
     Indication: DEPRESSION
     Dates: start: 20030401, end: 20040301
  21. RISPERDAL [Concomitant]
     Indication: BORDERLINE PERSONALITY DISORDER
     Dates: start: 20030401, end: 20040301
  22. ZYPREXA [Concomitant]
     Indication: DEPRESSION
     Dates: start: 20030424
  23. ZYPREXA [Concomitant]
     Indication: BORDERLINE PERSONALITY DISORDER
     Dates: start: 20030424
  24. ELAVIL [Concomitant]
     Dates: start: 19950101
  25. BUSPIRONE HCL [Concomitant]
     Dates: start: 20100101
  26. XANAX [Concomitant]
     Dates: start: 20060101
  27. EFFEXOR [Concomitant]
     Dates: start: 20050101
  28. CYMBALTA [Concomitant]
     Dates: start: 20080101
  29. VISTARAL [Concomitant]
     Dates: start: 20070101

REACTIONS (4)
  - DIABETIC NEUROPATHY [None]
  - HYPOGLYCAEMIA [None]
  - STAPHYLOCOCCAL INFECTION [None]
  - TYPE 2 DIABETES MELLITUS [None]
